FAERS Safety Report 9921590 (Version 3)
Quarter: 2014Q1

REPORT INFORMATION
  Report Type: Spontaneous
  Country: US (occurrence: US)
  Receive Date: 20140225
  Receipt Date: 20140317
  Transmission Date: 20141002
  Serious: No
  Sender: FDA-Public Use
  Company Number: US-PFIZER INC-2014052157

PATIENT
  Age: 59 Year
  Sex: Female

DRUGS (9)
  1. LYRICA [Suspect]
     Dosage: 150 MG, 2X/DAY
  2. LYRICA [Suspect]
     Dosage: UNK
  3. NEURONTIN [Suspect]
     Dosage: UNK
  4. KLONOPIN [Concomitant]
     Dosage: 1 MG, DAILY
  5. BABY ASPIRIN [Concomitant]
     Dosage: UNK
  6. PROZAC [Concomitant]
     Dosage: 30 MG, UNK
  7. TAPAZOL [Concomitant]
     Dosage: 2.5 MG, UNK
  8. LOPRESSOR [Concomitant]
     Dosage: 25 MG, UNK
  9. KEPPRA [Concomitant]
     Dosage: 500 MG, 2X

REACTIONS (1)
  - Withdrawal syndrome [Unknown]
